FAERS Safety Report 9847430 (Version 4)
Quarter: 2014Q2

REPORT INFORMATION
  Report Type: Spontaneous
  Country: US (occurrence: US)
  Receive Date: 20140127
  Receipt Date: 20140418
  Transmission Date: 20141212
  Serious: No
  Sender: FDA-Public Use
  Company Number: US-009507513-1401USA010351

PATIENT
  Age: 65 Year
  Sex: Male

DRUGS (9)
  1. PEGINTRON [Suspect]
     Indication: HEPATITIS C
     Dosage: 0.5CC, ONCE A WEEK, REDIPEN
     Route: 058
     Dates: start: 20140118, end: 20140405
  2. REBETOL [Suspect]
     Indication: HEPATITIS C
     Dosage: 500 MG, BID (TWICE A DAY) 3 AM AND PM
     Route: 048
     Dates: start: 20140118
  3. SOVALDI [Concomitant]
     Dosage: 400 MG, 1 BID
  4. WELLBUTRIN [Concomitant]
     Dosage: 200 MG, UNK
  5. ZOLOFT [Concomitant]
     Dosage: 100 MG, UNK
  6. PRINIVIL [Concomitant]
     Dosage: 40 MG, 1 QD
     Route: 048
  7. LYRICA [Concomitant]
     Dosage: 100 MG, UNK
  8. METFORMIN [Concomitant]
     Dosage: 500 MG, 1 QD
  9. BUSPIRONE HYDROCHLORIDE [Concomitant]
     Dosage: 30 MG, UNK

REACTIONS (6)
  - Influenza like illness [Unknown]
  - Fatigue [Unknown]
  - Pyrexia [Unknown]
  - Myalgia [Unknown]
  - Expired product administered [Unknown]
  - Anaemia [Unknown]
